FAERS Safety Report 16058694 (Version 2)
Quarter: 2019Q1

REPORT INFORMATION
  Report Type: Spontaneous
  Country: RO (occurrence: RO)
  Receive Date: 20190311
  Receipt Date: 20190314
  Transmission Date: 20190418
  Serious: Yes (Death, Hospitalization, Other)
  Sender: FDA-Public Use
  Company Number: RO-GILEAD-2019-0395769

PATIENT
  Age: 75 Year
  Sex: Female
  Weight: 49 kg

DRUGS (8)
  1. HARVONI [Suspect]
     Active Substance: LEDIPASVIR\SOFOSBUVIR
     Indication: HEPATITIS C
     Dosage: 1 DF, QD
     Route: 048
     Dates: start: 20181003, end: 20181202
  2. SINTROM [Concomitant]
     Active Substance: ACENOCOUMAROL
  3. NEBILET [Concomitant]
     Active Substance: NEBIVOLOL
  4. SPIRIVA [Concomitant]
     Active Substance: TIOTROPIUM BROMIDE MONOHYDRATE
  5. THEO [Concomitant]
     Active Substance: THEOPHYLLINE ANHYDROUS
  6. DETRALEX [Concomitant]
     Active Substance: DIOSMIN\HESPERIDIN
  7. DIGOXIN. [Concomitant]
     Active Substance: DIGOXIN
  8. DIUREX A [Concomitant]

REACTIONS (1)
  - Pneumonia [Fatal]

NARRATIVE: CASE EVENT DATE: 20181202
